FAERS Safety Report 5166994-4 (Version None)
Quarter: 2006Q4

REPORT INFORMATION
  Report Type: 
  Country: None (occurrence: None)
  Receive Date: 20061129
  Receipt Date: 20061116
  Transmission Date: 20070319
  Serious: Yes (Life-Threatening, Hospitalization, Other)
  Sender: FDA-Public Use
  Company Number: 2006142196

PATIENT
  Age: 73 Year
  Sex: Female
  Weight: 47 kg

DRUGS (15)
  1. PREDNISOLONE [Suspect]
     Indication: RHEUMATOID ARTHRITIS
  2. ENBREL [Suspect]
     Indication: RHEUMATOID ARTHRITIS
     Dosage: 50 MG (1 IN 1 WK), SUBCUTANEOUS
     Route: 058
     Dates: start: 20050415, end: 20060707
  3. CYCLOSPORINE [Concomitant]
  4. ACTONEL [Concomitant]
  5. ISONIAZID [Concomitant]
  6. DOXAZOSIN MESYLATE [Concomitant]
  7. MONTELUKAST SODIUM (MONTELUKAST SODIUM) [Concomitant]
  8. RISEDRONIC ACID (RISEDRONIC ACID) [Concomitant]
  9. BLOPRESS (CANDESARTAN CILEXETIL) [Concomitant]
  10. ETODOLAC [Concomitant]
  11. OMEPRAZOLE [Concomitant]
  12. SULFAMETHOXAZOLE + TRIMETHOPRIM [Concomitant]
  13. ASPARTATE CALCIUM (ASPARTATE CALCIUM) [Concomitant]
  14. CARBAZOCHROME SODIUM SULFONATE (CARBAZOCHROME SODIUM SULFONATE) [Concomitant]
  15. PROGRAF [Concomitant]

REACTIONS (4)
  - LUMBAR SPINAL STENOSIS [None]
  - OXYGEN SATURATION DECREASED [None]
  - PULMONARY CONGESTION [None]
  - RENAL FAILURE ACUTE [None]
